FAERS Safety Report 10592491 (Version 1)
Quarter: 2014Q4

REPORT INFORMATION
  Report Type: Spontaneous
  Country: GB (occurrence: None)
  Receive Date: 20141117
  Receipt Date: 20141117
  Transmission Date: 20150529
  Serious: Yes (Hospitalization, Other)
  Sender: FDA-Public Use
  Company Number: 2014COR00119

PATIENT
  Age: 68 Year
  Sex: Female

DRUGS (1)
  1. METFORMIN [Suspect]
     Active Substance: METFORMIN HYDROCHLORIDE
     Indication: TYPE 2 DIABETES MELLITUS

REACTIONS (9)
  - Hypotension [None]
  - Confusional state [None]
  - Alcohol poisoning [None]
  - Hypoglycaemia [None]
  - Metabolic acidosis [None]
  - Agitation [None]
  - Urine output decreased [None]
  - Loss of consciousness [None]
  - Lactic acidosis [None]
